FAERS Safety Report 8999045 (Version 2)
Quarter: 2013Q1

REPORT INFORMATION
  Report Type: Spontaneous
  Country: US (occurrence: US)
  Receive Date: 20130103
  Receipt Date: 20130110
  Transmission Date: 20140127
  Serious: Yes (Hospitalization, Other)
  Sender: FDA-Public Use
  Company Number: PHEH2012US025659

PATIENT
  Sex: Male

DRUGS (9)
  1. TEGRETOL-XR [Suspect]
     Dosage: 400 MG, QD
     Route: 048
  2. TEGRETOL-XR [Suspect]
     Dosage: 100 MG, QD
     Route: 048
  3. FOLIC ACID [Concomitant]
  4. ASPIRIN [Concomitant]
     Dosage: 81 MG, UNK
  5. LISINOPRIL [Concomitant]
  6. VALTREX [Concomitant]
  7. TRAVATAN Z [Concomitant]
  8. COMBIGAN [Concomitant]
  9. METHAZOLAMIDE [Concomitant]

REACTIONS (6)
  - Blood pressure decreased [Unknown]
  - Aneurysm [Unknown]
  - Gait disturbance [Unknown]
  - Hypersomnia [Unknown]
  - Speech disorder [Unknown]
  - Decreased appetite [Unknown]
